FAERS Safety Report 6087271-3 (Version None)
Quarter: 2009Q1

REPORT INFORMATION
  Report Type: 
  Country: None (occurrence: None)
  Receive Date: 20090219
  Receipt Date: 20081202
  Transmission Date: 20090719
  Serious: Yes (Disabling)
  Sender: FDA-Public Use
  Company Number: WAES 0812USA00591

PATIENT
  Age: 49 Year
  Sex: Male

DRUGS (4)
  1. ISENTRESS [Suspect]
     Dosage: 400 MG/BID/PO
     Route: 048
     Dates: start: 20080401
  2. PREZISTA [Concomitant]
  3. TRUVADA [Concomitant]
  4. RITONAVIR [Concomitant]

REACTIONS (3)
  - ARTHRALGIA [None]
  - HYPOAESTHESIA [None]
  - PARAESTHESIA [None]
